FAERS Safety Report 9080094 (Version 2)
Quarter: 2014Q1

REPORT INFORMATION
  Report Type: Spontaneous
  Country: US (occurrence: US)
  Receive Date: 20130218
  Receipt Date: 20140206
  Transmission Date: 20141002
  Serious: No
  Sender: FDA-Public Use
  Company Number: US-PFIZER INC-2013060880

PATIENT
  Age: 39 Year
  Sex: Female
  Weight: 90.7 kg

DRUGS (6)
  1. ENBREL [Suspect]
     Dosage: UNK
     Dates: start: 2009, end: 2011
  2. ARAVA [Concomitant]
     Dosage: UNK
  3. LEVOTHYROXINE [Concomitant]
     Dosage: UNK
  4. OMEPRAZOLE [Concomitant]
     Dosage: UNK
  5. ADVAIR [Concomitant]
     Indication: PRODUCT USED FOR UNKNOWN INDICATION
  6. TYLENOL ^JOHNSON + JOHNSON^ [Concomitant]
     Indication: PRODUCT USED FOR UNKNOWN INDICATION
     Dosage: UNK

REACTIONS (3)
  - Muscular weakness [Recovered/Resolved]
  - Gait disturbance [Recovered/Resolved]
  - Drug hypersensitivity [Recovered/Resolved]
